FAERS Safety Report 10372901 (Version 2)
Quarter: 2014Q3

REPORT INFORMATION
  Report Type: Spontaneous
  Country: US (occurrence: US)
  Receive Date: 20140808
  Receipt Date: 20140808
  Transmission Date: 20150326
  Serious: No
  Sender: FDA-Public Use
  Company Number: US-BRISTOL-MYERS SQUIBB COMPANY-19735869

PATIENT
  Age: 76 Year
  Sex: Female
  Weight: 77.1 kg

DRUGS (2)
  1. SPRYCEL [Suspect]
     Active Substance: DASATINIB
  2. MOBIC [Concomitant]
     Active Substance: MELOXICAM

REACTIONS (6)
  - Asthenia [Unknown]
  - Dyspnoea [Unknown]
  - Hypoaesthesia [Unknown]
  - Musculoskeletal pain [Unknown]
  - Alopecia [Unknown]
  - Visual acuity reduced [Unknown]
